FAERS Safety Report 18210745 (Version 6)
Quarter: 2020Q4

REPORT INFORMATION
  Report Type: Report from Study
  Country: US (occurrence: US)
  Receive Date: 20200829
  Receipt Date: 20201229
  Transmission Date: 20210113
  Serious: Yes (Hospitalization)
  Sender: FDA-Public Use
  Company Number: NVSC2020US238226

PATIENT
  Sex: Male

DRUGS (1)
  1. MAYZENT [Suspect]
     Active Substance: SIPONIMOD
     Indication: MULTIPLE SCLEROSIS
     Dosage: 2 MG, QD
     Route: 048

REACTIONS (9)
  - Hypoaesthesia oral [Unknown]
  - Peripheral swelling [Unknown]
  - Malaise [Unknown]
  - Headache [Recovered/Resolved]
  - Hypoaesthesia [Unknown]
  - Pain in extremity [Unknown]
  - Gait disturbance [Unknown]
  - Thrombosis [Unknown]
  - Diarrhoea [Unknown]
